FAERS Safety Report 5893327-8 (Version None)
Quarter: 2008Q3

REPORT INFORMATION
  Report Type: 
  Country: None (occurrence: None)
  Receive Date: 20080923
  Receipt Date: 20080916
  Transmission Date: 20090109
  Serious: Yes (Other)
  Sender: FDA-Public Use
  Company Number: US-ASTRAZENECA-2008UW19165

PATIENT
  Age: 66 Year
  Sex: Female
  Weight: 54.4 kg

DRUGS (3)
  1. ARIMIDEX [Suspect]
     Indication: BREAST CANCER
     Route: 048
     Dates: start: 20030101
  2. PHENOBARBITAL TAB [Concomitant]
  3. FOSAMAX [Concomitant]

REACTIONS (4)
  - BODY HEIGHT DECREASED [None]
  - BONE DENSITY DECREASED [None]
  - GALLBLADDER OPERATION [None]
  - HOT FLUSH [None]
